FAERS Safety Report 5520554-1 (Version None)
Quarter: 2007Q4

REPORT INFORMATION
  Report Type: 
  Country: None (occurrence: None)
  Receive Date: 20071115
  Receipt Date: 20071101
  Transmission Date: 20080405
  Serious: No
  Sender: FDA-Public Use
  Company Number: 2007S1000421

PATIENT
  Age: 45 Year
  Sex: Male

DRUGS (3)
  1. CUBICIN [Suspect]
     Indication: ENTEROCOCCAL BACTERAEMIA
     Dosage: 500 MG;Q24H;IV
     Route: 042
     Dates: start: 20060916, end: 20061001
  2. CUBICIN [Suspect]
     Indication: STAPHYLOCOCCAL INFECTION
     Dosage: 500 MG;Q24H;IV
     Route: 042
     Dates: start: 20060916, end: 20061001
  3. VANCOMYCIN [Concomitant]

REACTIONS (3)
  - CEREBROVASCULAR ACCIDENT [None]
  - ENTEROCOCCAL BACTERAEMIA [None]
  - STAPHYLOCOCCAL BACTERAEMIA [None]
